FAERS Safety Report 5151247-0 (Version None)
Quarter: 2006Q4

REPORT INFORMATION
  Report Type: 
  Country: None (occurrence: None)
  Receive Date: 20061110
  Receipt Date: 20061110
  Transmission Date: 20070319
  Serious: Yes (Other)
  Sender: FDA-Public Use
  Company Number: None

PATIENT
  Age: 51 Year
  Sex: Male
  Weight: 65.7716 kg

DRUGS (2)
  1. PEGASYS [Suspect]
     Indication: HEPATITIS C
     Dosage: 180MCG/0.5 MG WEEKLY SQ
     Route: 058
     Dates: start: 20060131, end: 20061106
  2. RIBAPAK 600-400MG DSM PHARMACEUTICALS [Suspect]
     Indication: HEPATITIS C
     Dosage: 600-400MG TWICE DAILY PO
     Route: 048
     Dates: start: 20060131, end: 20061106

REACTIONS (7)
  - ANAEMIA [None]
  - DIZZINESS [None]
  - ERYTHEMA [None]
  - INJECTION SITE IRRITATION [None]
  - SKIN EXFOLIATION [None]
  - SKIN ODOUR ABNORMAL [None]
  - SKIN ULCER [None]
